FAERS Safety Report 18265848 (Version 2)
Quarter: 2021Q2

REPORT INFORMATION
  Report Type: Report from Study
  Country: CN (occurrence: CN)
  Receive Date: 20200914
  Receipt Date: 20210603
  Transmission Date: 20210717
  Serious: Yes (Hospitalization)
  Sender: FDA-Public Use
  Company Number: CN-ROCHE-2670234

PATIENT
  Age: 66 Year
  Sex: Male
  Weight: 68.5 kg

DRUGS (24)
  1. VITAMIN D2 + CALCIUM [Concomitant]
     Route: 048
     Dates: start: 20200812
  2. MESNA. [Concomitant]
     Active Substance: MESNA
     Route: 042
     Dates: start: 20200812, end: 20200812
  3. DIPHENHYDRAMINE HYDROCHLORIDE. [Concomitant]
     Active Substance: DIPHENHYDRAMINE HYDROCHLORIDE
     Route: 048
     Dates: start: 20200811, end: 20200812
  4. GLUCOSE [Concomitant]
     Active Substance: DEXTROSE
     Route: 042
     Dates: start: 20200811, end: 20200813
  5. PANTOPRAZOLE [Concomitant]
     Active Substance: PANTOPRAZOLE
     Route: 042
     Dates: start: 20200810, end: 20200814
  6. SODIUM BICARBONATE. [Concomitant]
     Active Substance: SODIUM BICARBONATE
     Route: 042
     Dates: start: 20200810, end: 20200813
  7. POTASSIUM CITRATE. [Concomitant]
     Active Substance: POTASSIUM CITRATE
     Route: 042
     Dates: start: 20200812, end: 20200814
  8. CYCLOPHOSPHAMIDE. [Suspect]
     Active Substance: CYCLOPHOSPHAMIDE
     Indication: DIFFUSE LARGE B-CELL LYMPHOMA
     Dosage: DATE OF MOST RECENT DOSE OF CYCLOPHOSPHAMIDE PRIOR TO SAE ONSET 12 AUG 2020 (1365 MG)
     Route: 042
     Dates: start: 20200812
  9. PREDNISONE. [Suspect]
     Active Substance: PREDNISONE
     Indication: DIFFUSE LARGE B-CELL LYMPHOMA
     Dosage: DATE OF MOST RECENT DOSE OF PREDNISONE PRIOR TO SAE ONSET 15 AUG 2020 (100 MG)?ON DAYS 1?5 OF EVERY
     Route: 048
     Dates: start: 20200811
  10. ONDANSETRON [Concomitant]
     Active Substance: ONDANSETRON
     Route: 042
     Dates: start: 20200812, end: 20200812
  11. MECAPEGFILGRASTIM [Concomitant]
     Active Substance: MECAPEGFILGRASTIM
     Route: 058
     Dates: start: 20200814, end: 20200814
  12. POLATUZUMAB VEDOTIN. [Suspect]
     Active Substance: POLATUZUMAB VEDOTIN
     Indication: DIFFUSE LARGE B-CELL LYMPHOMA
     Dosage: DATE OF MOST RECENT DOSE OF BLINDED POLATUZUMAB VEDOTIN PRIOR TO SAE ONSET 12 AUG 2020
     Route: 042
     Dates: start: 20200812
  13. COMPOUND CHLORHEXIDINE GARGLE [Concomitant]
     Indication: INFECTION PROPHYLAXIS
     Route: 061
     Dates: start: 20200811, end: 20210111
  14. DOXORUBICIN [Suspect]
     Active Substance: DOXORUBICIN
     Indication: DIFFUSE LARGE B-CELL LYMPHOMA
     Dosage: DATE OF MOST RECENT DOSE OF DOXORUBICIN PRIOR TO SAE ONSET 12 AUG 2020 (91 MG)
     Route: 042
     Dates: start: 20200812
  15. SODIUM BICARBONATE. [Concomitant]
     Active Substance: SODIUM BICARBONATE
     Route: 042
     Dates: start: 20200814, end: 20200814
  16. TRIMETAZIDINE DIHYDROCHLORIDE [Concomitant]
     Active Substance: TRIMETAZIDINE DIHYDROCHLORIDE
     Route: 048
     Dates: start: 20200812, end: 20200814
  17. PLACEBO [Suspect]
     Active Substance: UNSPECIFIED INGREDIENT
     Indication: DIFFUSE LARGE B-CELL LYMPHOMA
     Dosage: DATE OF MOST RECENT DOSE OF VINCRISTIN (12/AUG/2020)
     Route: 042
     Dates: start: 20200812
  18. ENTECAVIR. [Concomitant]
     Active Substance: ENTECAVIR
     Route: 048
     Dates: start: 20200812
  19. IODOPHOR [Concomitant]
     Active Substance: POVIDONE-IODINE
     Indication: INFECTION PROPHYLAXIS
     Dates: start: 20200811, end: 20210111
  20. RITUXIMAB. [Suspect]
     Active Substance: RITUXIMAB
     Indication: DIFFUSE LARGE B-CELL LYMPHOMA
     Dosage: DATE OF MOST RECENT DOSE OF RITUXIMAB PRIOR TO SAE ONSET 11 AUG 2020 (682.5 MG)
     Route: 041
     Dates: start: 20200811
  21. DIISOPROPYLAMINE DICHLOROACETATE [Concomitant]
     Route: 042
     Dates: start: 20200810, end: 20200814
  22. DEXRAZOXANE. [Concomitant]
     Active Substance: DEXRAZOXANE
     Route: 042
     Dates: start: 20200812, end: 20200812
  23. ACETAMINOPHEN. [Concomitant]
     Active Substance: ACETAMINOPHEN
     Route: 048
     Dates: start: 20200811, end: 20200812
  24. INSULIN [Concomitant]
     Active Substance: INSULIN NOS
     Route: 042
     Dates: start: 20200811, end: 20200813

REACTIONS (1)
  - Myelosuppression [Recovered/Resolved]

NARRATIVE: CASE EVENT DATE: 20200819
